FAERS Safety Report 13618117 (Version 1)
Quarter: 2017Q2

REPORT INFORMATION
  Report Type: Report from Study
  Country: TW (occurrence: TW)
  Receive Date: 20170606
  Receipt Date: 20170606
  Transmission Date: 20170830
  Serious: Yes (Life-Threatening, Other)
  Sender: FDA-Public Use
  Company Number: TW-BRISTOL-MYERS SQUIBB COMPANY-BMS-2017-045766

PATIENT
  Age: 35 Year
  Sex: Male

DRUGS (1)
  1. ABATACEPT [Suspect]
     Active Substance: ABATACEPT
     Indication: RHEUMATOID ARTHRITIS
     Dosage: 1000 MG, QMO
     Route: 041
     Dates: start: 20150302

REACTIONS (5)
  - Abscess drainage [Unknown]
  - Anal abscess [Unknown]
  - Fistula [Unknown]
  - Proctalgia [Recovering/Resolving]
  - Anal haemorrhage [Recovering/Resolving]
